FAERS Safety Report 9531872 (Version 1)
Quarter: 2013Q3

REPORT INFORMATION
  Report Type: Spontaneous
  Country: US (occurrence: US)
  Receive Date: 20130918
  Receipt Date: 20130918
  Transmission Date: 20140515
  Serious: No
  Sender: FDA-Public Use
  Company Number: US-PFIZER INC-2013267946

PATIENT
  Age: 38 Year
  Sex: Female
  Weight: 102 kg

DRUGS (5)
  1. DILANTIN [Suspect]
     Indication: CONVULSION
     Dosage: (200MG IN MORNING AND 300MG IN NIGHT ), 2X/DAY
     Dates: start: 1983
  2. LORAZEPAM [Concomitant]
     Dosage: 1 MG, 1X/DAY
  3. PREMARIN [Concomitant]
     Indication: POSTOPERATIVE CARE
     Dosage: 0.625 MG, 1X/DAY
     Route: 048
     Dates: start: 1996
  4. NEURONTIN [Concomitant]
     Indication: ANXIETY
     Dosage: (300MG IN MORNING AND 900MG IN NIGHT), 2X/DAY
     Dates: start: 2012
  5. GEMFIBROZIL [Concomitant]
     Indication: BLOOD CHOLESTEROL INCREASED
     Dosage: 600 MG, 2X/DAY

REACTIONS (1)
  - Memory impairment [Not Recovered/Not Resolved]
